FAERS Safety Report 16223044 (Version 2)
Quarter: 2019Q2

REPORT INFORMATION
  Report Type: Spontaneous
  Country: US (occurrence: US)
  Receive Date: 20190422
  Receipt Date: 20190529
  Transmission Date: 20190711
  Serious: No
  Sender: FDA-Public Use
  Company Number: US-SA-2019SA108446

PATIENT
  Age: 30 Year
  Sex: Female

DRUGS (1)
  1. DUPIXENT [Suspect]
     Active Substance: DUPILUMAB
     Indication: DERMATITIS ATOPIC
     Dosage: 300 MG
     Route: 058
     Dates: start: 201903

REACTIONS (4)
  - Migraine [Recovered/Resolved]
  - Arthralgia [Recovered/Resolved]
  - Dyspnoea [Unknown]
  - Serum sickness [Recovered/Resolved]

NARRATIVE: CASE EVENT DATE: 20190416
